FAERS Safety Report 10162153 (Version 5)
Quarter: 2014Q3

REPORT INFORMATION
  Report Type: Spontaneous
  Country: GB (occurrence: GB)
  Receive Date: 20140509
  Receipt Date: 20140801
  Transmission Date: 20150326
  Serious: Yes (Hospitalization)
  Sender: FDA-Public Use
  Company Number: GB-BEH-2014040633

PATIENT
  Sex: Female
  Weight: 70 kg

DRUGS (2)
  1. BERINERT [Suspect]
     Active Substance: HUMAN C1-ESTERASE INHIBITOR
     Indication: SWELLING
     Dosage: 10 MINUTES WEEKLY (ON FRIDAYS) INFUSED, 1000 U
  2. BERINERT [Suspect]
     Active Substance: HUMAN C1-ESTERASE INHIBITOR
     Indication: PROPHYLAXIS
     Dosage: 10 MINUTES WEEKLY (ON FRIDAYS) INFUSED, 1000 U

REACTIONS (3)
  - Vaginal haemorrhage [Unknown]
  - Abortion spontaneous [Unknown]
  - Exposure during pregnancy [Unknown]
